FAERS Safety Report 8395036-2 (Version None)
Quarter: 2012Q1

REPORT INFORMATION
  Report Type: 
  Country: None (occurrence: None)
  Receive Date: 20120323
  Receipt Date: 20110318
  Transmission Date: 20120608
  Serious: Yes (Other)
  Sender: FDA-Public Use
  Company Number: 163-21880-11032477

PATIENT
  Age: 78 Year
  Sex: Female

DRUGS (2)
  1. REVLIMID [Suspect]
     Indication: MULTIPLE MYELOMA
     Dosage: 15 MG, 1 IN 1 D, PO ; 10 MG, DAILY FOR 21 DAYS, OFF 7 DAYS, PO
     Route: 048
     Dates: start: 20110104, end: 20110204
  2. REVLIMID [Suspect]
     Indication: MULTIPLE MYELOMA
     Dosage: 15 MG, 1 IN 1 D, PO ; 10 MG, DAILY FOR 21 DAYS, OFF 7 DAYS, PO
     Route: 048
     Dates: start: 20110318

REACTIONS (1)
  - PAIN [None]
